FAERS Safety Report 6597520-0 (Version None)
Quarter: 2010Q1

REPORT INFORMATION
  Report Type: 
  Country: None (occurrence: None)
  Receive Date: 20100223
  Receipt Date: 20100218
  Transmission Date: 20100710
  Serious: Yes (Other)
  Sender: FDA-Public Use
  Company Number: US-GENENTECH-297820

PATIENT
  Sex: Male
  Weight: 115.65 kg

DRUGS (8)
  1. XOLAIR [Suspect]
     Indication: ASTHMA
     Dosage: 300 UNK, Q4W
     Route: 058
     Dates: start: 20090912
  2. ADVAIR DISKUS 100/50 [Concomitant]
     Indication: DRUG USE FOR UNKNOWN INDICATION
  3. FLONASE [Concomitant]
     Indication: DRUG USE FOR UNKNOWN INDICATION
  4. CLARITIN [Concomitant]
     Indication: DRUG USE FOR UNKNOWN INDICATION
  5. ASTEPRO [Concomitant]
     Indication: DRUG USE FOR UNKNOWN INDICATION
  6. PROVENTIL [Concomitant]
     Indication: DRUG USE FOR UNKNOWN INDICATION
  7. PATADAY [Concomitant]
     Indication: DRUG USE FOR UNKNOWN INDICATION
  8. ALLEGRA [Concomitant]
     Indication: DRUG USE FOR UNKNOWN INDICATION

REACTIONS (1)
  - MYOCARDIAL INFARCTION [None]
